FAERS Safety Report 8140913-0 (Version None)
Quarter: 2012Q1

REPORT INFORMATION
  Report Type: 
  Country: None (occurrence: None)
  Receive Date: 20120214
  Receipt Date: 20120214
  Transmission Date: 20120608
  Serious: Yes (Hospitalization)
  Sender: FDA-Public Use
  Company Number: None

PATIENT
  Age: 59 Year
  Sex: Male
  Weight: 69.9 kg

DRUGS (3)
  1. CARVEDILOL [Suspect]
     Indication: CARDIAC FAILURE CONGESTIVE
     Dosage: 37.5 MG BID PO
     Route: 048
     Dates: start: 20101223, end: 20111231
  2. CARVEDILOL [Suspect]
     Indication: HYPERTENSION
     Dosage: 37.5 MG BID PO
     Route: 048
     Dates: start: 20101223, end: 20111231
  3. DILTIAZEM HCL [Suspect]
     Indication: TACHYCARDIA
     Dosage: 120 MG EVERY DAY PO
     Route: 048
     Dates: start: 20111227, end: 20120109

REACTIONS (7)
  - CONFUSIONAL STATE [None]
  - FALL [None]
  - DYSPNOEA [None]
  - TACHYCARDIA [None]
  - DIZZINESS [None]
  - PALPITATIONS [None]
  - BRADYCARDIA [None]
